FAERS Safety Report 5479111-8 (Version None)
Quarter: 2007Q4

REPORT INFORMATION
  Report Type: 
  Country: None (occurrence: None)
  Receive Date: 20071002
  Receipt Date: 20070926
  Transmission Date: 20080405
  Serious: Yes (Hospitalization, Other)
  Sender: FDA-Public Use
  Company Number: 163-21880-07081936

PATIENT
  Age: 70 Year
  Sex: Female

DRUGS (1)
  1. REVLIMID [Suspect]
     Indication: MYELODYSPLASTIC SYNDROME
     Dosage: 5-20MG, DAILY, ORAL
     Route: 048
     Dates: start: 20070601, end: 20070801

REACTIONS (3)
  - DISEASE PROGRESSION [None]
  - PLATELET COUNT DECREASED [None]
  - SPLENOMEGALY [None]
